FAERS Safety Report 8272356-3 (Version None)
Quarter: 2012Q1

REPORT INFORMATION
  Report Type: 
  Country: None (occurrence: None)
  Receive Date: 20120321
  Receipt Date: 20110713
  Transmission Date: 20120608
  Serious: Yes (Other)
  Sender: FDA-Public Use
  Company Number: 2011SP032764

PATIENT

DRUGS (1)
  1. PEG-INTRON [Suspect]
     Indication: PRODUCT USED FOR UNKNOWN INDICATION
     Dosage: 180 MCG;, 150 MCG;
     Dates: start: 20101201

REACTIONS (1)
  - HALLUCINATION, AUDITORY [None]
